FAERS Safety Report 9221447 (Version 1)
Quarter: 2013Q2

REPORT INFORMATION
  Report Type: Spontaneous
  Country: IT (occurrence: IT)
  Receive Date: 20130410
  Receipt Date: 20130410
  Transmission Date: 20140414
  Serious: Yes (Death)
  Sender: FDA-Public Use
  Company Number: IT-009507513-1304ITA003548

PATIENT
  Age: 80 Year
  Sex: Male

DRUGS (5)
  1. SINVACOR 40 MG COMPRESSE RIVESTITE CON FILM [Suspect]
     Indication: HYPERCHOLESTEROLAEMIA
     Dosage: 40 MG, QD
     Route: 048
     Dates: start: 20130101, end: 20130401
  2. ALLOPURINOL [Suspect]
     Indication: HYPERURICAEMIA
     Dosage: 75 MG, QD
     Route: 048
  3. FUROSEMIDE [Concomitant]
     Dosage: UNK
  4. ASPIRIN [Concomitant]
     Dosage: UNK
  5. TELMISARTAN [Concomitant]
     Dosage: UNK

REACTIONS (3)
  - Metabolic acidosis [Fatal]
  - Renal failure acute [Fatal]
  - Rhabdomyolysis [Fatal]
